FAERS Safety Report 26165168 (Version 1)
Quarter: 2025Q4

REPORT INFORMATION
  Report Type: Report from Study
  Country: GB (occurrence: GB)
  Receive Date: 20251216
  Receipt Date: 20251216
  Transmission Date: 20260118
  Serious: Yes (Hospitalization)
  Sender: JOHNSON AND JOHNSON
  Company Number: GB-JNJFOC-20251216021

PATIENT
  Age: 8 Decade
  Sex: Female

DRUGS (1)
  1. TREMFYA [Suspect]
     Active Substance: GUSELKUMAB
     Indication: Psoriasis
     Route: 058
     Dates: start: 2025

REACTIONS (3)
  - Hepatic failure [Unknown]
  - Infection [Unknown]
  - Confusional state [Unknown]

NARRATIVE: CASE EVENT DATE: 20250101
